FAERS Safety Report 4643456-1 (Version None)
Quarter: 2005Q2

REPORT INFORMATION
  Report Type: 
  Country: None (occurrence: None)
  Receive Date: 20050323
  Receipt Date: 20040421
  Transmission Date: 20051028
  Serious: Yes (Hospitalization)
  Sender: FDA-Public Use
  Company Number: K200400614

PATIENT
  Age: 50 Year
  Sex: Female
  Weight: 114.3 kg

DRUGS (2)
  1. ALTACE [Suspect]
     Indication: DIABETES MELLITUS
     Dosage: 10 MG, QD, ORAL
     Route: 048
     Dates: end: 20040420
  2. GLUCOPHAGE [Concomitant]

REACTIONS (7)
  - ABDOMINAL PAIN [None]
  - BLOOD ALKALINE PHOSPHATASE INCREASED [None]
  - COUGH [None]
  - DIARRHOEA [None]
  - LIPASE INCREASED [None]
  - PANCREATITIS [None]
  - VOMITING [None]
